FAERS Safety Report 20808865 (Version 2)
Quarter: 2022Q2

REPORT INFORMATION
  Report Type: Spontaneous
  Country: GB (occurrence: GB)
  Receive Date: 20220510
  Receipt Date: 20220511
  Transmission Date: 20220721
  Serious: Yes (Death, Life-Threatening, Hospitalization, Disabling, Other)
  Sender: FDA-Public Use
  Company Number: None

PATIENT
  Age: 77 Year
  Sex: Female

DRUGS (1)
  1. SUNITINIB MALATE [Suspect]
     Active Substance: SUNITINIB MALATE
     Indication: Metastatic renal cell carcinoma
     Dosage: UNK
     Dates: start: 202203

REACTIONS (6)
  - Intestinal perforation [Fatal]
  - Pneumoperitoneum [Unknown]
  - Confusional state [Unknown]
  - Agitation [Unknown]
  - Hypophagia [Unknown]
  - Pain [Unknown]

NARRATIVE: CASE EVENT DATE: 20220421
